FAERS Safety Report 20874138 (Version 1)
Quarter: 2022Q2

REPORT INFORMATION
  Report Type: Spontaneous
  Country: GB (occurrence: GB)
  Receive Date: 20220525
  Receipt Date: 20220525
  Transmission Date: 20220720
  Serious: Yes (Other)
  Sender: FDA-Public Use
  Company Number: None

PATIENT
  Age: 66 Year
  Sex: Male
  Weight: 114 kg

DRUGS (7)
  1. FENTANYL [Suspect]
     Active Substance: FENTANYL
     Indication: Product used for unknown indication
     Dosage: 1 DOSAGE FORM, Q3D ( (APPLY ONE PATCH EVERY 72 HOURS AS DIRECTED)
  2. AMOXICILLIN [Concomitant]
     Active Substance: AMOXICILLIN
     Indication: Chronic obstructive pulmonary disease
     Dosage: 500 MILLIGRAM, TID (ONE TO BE TAKEN THREE TIMES A DAY RESCUE PACK)
     Dates: start: 20220216, end: 20220331
  3. AMOXICILLIN [Concomitant]
     Active Substance: AMOXICILLIN
     Dosage: 500 MILLIGRAM, TID (ONE TO BE TAKEN THREE TIMES A DAY RESCUE PACK)
     Dates: start: 20220412
  4. FENCINO [Concomitant]
     Dosage: 1 DOSAGE FORM, Q3D ( (APPLY ONE PATCH EVERY 72 HOURS AS DIRECTED)
     Dates: start: 20220509, end: 20220516
  5. OXYCODONE [Concomitant]
     Active Substance: OXYCODONE
     Dosage: 250 MILLILITER, PRN (2.5 - 5ML 4H PRN)
     Dates: start: 20220509, end: 20220516
  6. PREDNISOLONE [Concomitant]
     Active Substance: PREDNISOLONE
     Indication: Chronic obstructive pulmonary disease
     Dosage: 6 DOSAGE FORM, QD (6 DAILY - RESCUE PACK)
     Dates: start: 20220216, end: 20220331
  7. PREDNISOLONE [Concomitant]
     Active Substance: PREDNISOLONE
     Dosage: 6 DOSAGE FORM, QD (6 DAILY - RESCUE PACK)
     Dates: start: 20220412

REACTIONS (2)
  - Dyspnoea at rest [Recovered/Resolved]
  - Dyspnoea [Recovered/Resolved]

NARRATIVE: CASE EVENT DATE: 20220514
